FAERS Safety Report 8350611-6 (Version None)
Quarter: 2012Q2

REPORT INFORMATION
  Report Type: 
  Country: None (occurrence: None)
  Receive Date: 20120510
  Receipt Date: 20120430
  Transmission Date: 20120825
  Serious: Yes (Other)
  Sender: FDA-Public Use
  Company Number: TR-JNJFOC-20120501246

PATIENT
  Age: 10 Month

DRUGS (4)
  1. VINCRISTINE [Suspect]
     Indication: NEPHROBLASTOMA
     Dosage: POST OPERATIVE CHEMOTHERAPY FOR WILMS TUMOR
     Route: 065
  2. VINCRISTINE [Suspect]
     Dosage: PRE-OPERATIVE CHEMOTHERAPY
     Route: 065
  3. DACTINOMYCIN [Suspect]
     Indication: NEPHROBLASTOMA
     Route: 065
  4. DOXORUBICIN HCL [Suspect]
     Indication: NEPHROBLASTOMA
     Dosage: 1-3 DAYS
     Route: 042

REACTIONS (1)
  - PANCYTOPENIA [None]
